FAERS Safety Report 13288204 (Version 1)
Quarter: 2017Q1

REPORT INFORMATION
  Report Type: Spontaneous
  Country: FR (occurrence: TW)
  Receive Date: 20170302
  Receipt Date: 20170302
  Transmission Date: 20170428
  Serious: Yes (Hospitalization)
  Sender: FDA-Public Use
  Company Number: FR-SHENZHEN TECHDOW PHARMACEUTICAL CO. LTD-TW-2017TEC0000009

PATIENT
  Age: 51 Year
  Sex: Male

DRUGS (4)
  1. HEPARIN SODIUM INJECTION USP, PRESERVATIVE FREE [Suspect]
     Active Substance: HEPARIN SODIUM
     Indication: DIALYSIS
     Dosage: UNK
  2. RIFAMPICIN [Concomitant]
     Active Substance: RIFAMPIN
     Indication: SEPSIS
     Dosage: UNK
  3. DANAPAROID [Suspect]
     Active Substance: DANAPAROID
     Indication: PRODUCT USED FOR UNKNOWN INDICATION
     Dosage: UNK
  4. OXACILLIN [Concomitant]
     Active Substance: OXACILLIN SODIUM
     Indication: SEPSIS
     Dosage: UNK

REACTIONS (4)
  - Heparin-induced thrombocytopenia [Recovered/Resolved]
  - Platelet count decreased [Recovering/Resolving]
  - Thrombosis in device [Recovered/Resolved]
  - Drug cross-reactivity [Recovered/Resolved]
